FAERS Safety Report 8524297-1 (Version None)
Quarter: 2012Q3

REPORT INFORMATION
  Report Type: 
  Country: None (occurrence: None)
  Receive Date: 20120720
  Receipt Date: 20120419
  Transmission Date: 20120928
  Serious: Yes (Other)
  Sender: FDA-Public Use
  Company Number: IE-ASTRAZENECA-2012SE49310

PATIENT
  Age: 76 Year
  Sex: Male

DRUGS (3)
  1. OMEPRAZOLE [Suspect]
     Indication: PROPHYLAXIS
  2. CLOPIDOGREL [Suspect]
  3. ASPIRIN [Concomitant]

REACTIONS (2)
  - THROMBOSIS IN DEVICE [None]
  - EMBOLIC STROKE [None]
